FAERS Safety Report 17876812 (Version 9)
Quarter: 2021Q1

REPORT INFORMATION
  Report Type: Spontaneous
  Country: US (occurrence: US)
  Receive Date: 20200609
  Receipt Date: 20210324
  Transmission Date: 20210419
  Serious: No
  Sender: FDA-Public Use
  Company Number: US-SA-2020SA147555

PATIENT
  Age: 71 Year
  Sex: Female

DRUGS (2)
  1. DUPIXENT [Suspect]
     Active Substance: DUPILUMAB
     Dosage: 300 MG, QOW
     Route: 058
     Dates: start: 2020
  2. DUPIXENT [Suspect]
     Active Substance: DUPILUMAB
     Indication: DERMATITIS ATOPIC
     Dosage: 600 MG, 1X
     Route: 058
     Dates: start: 202005, end: 202005

REACTIONS (13)
  - Therapeutic response shortened [Unknown]
  - Impaired healing [Unknown]
  - Rash pruritic [Unknown]
  - Eczema [Unknown]
  - Radiotherapy [Not Recovered/Not Resolved]
  - Wrist surgery [Unknown]
  - Sinusitis [Recovering/Resolving]
  - Headache [Recovering/Resolving]
  - Pruritus [Unknown]
  - Limb operation [Unknown]
  - Somnolence [Unknown]
  - Pruritus [Unknown]
  - Hand fracture [Unknown]

NARRATIVE: CASE EVENT DATE: 2020
